FAERS Safety Report 20840224 (Version 1)
Quarter: 2022Q2

REPORT INFORMATION
  Report Type: Spontaneous
  Country: US (occurrence: None)
  Receive Date: 20220516
  Receipt Date: 20220516
  Transmission Date: 20220721
  Serious: No
  Sender: FDA-Public Use
  Company Number: None

PATIENT
  Sex: Female
  Weight: 60.78 kg

DRUGS (17)
  1. CAPECITABINE [Suspect]
     Active Substance: CAPECITABINE
     Indication: Breast cancer
     Dosage: FREQUENCY : TWICE A DAY;?
     Route: 048
  2. LEVOTHYROXINE [Concomitant]
  3. RALOXIFENE [Concomitant]
     Active Substance: RALOXIFENE
  4. TELMISARTAN [Concomitant]
     Active Substance: TELMISARTAN
  5. SIMVASTATIN [Concomitant]
     Active Substance: SIMVASTATIN
  6. BUMETANIDE [Concomitant]
     Active Substance: BUMETANIDE
  7. POTASSIUM [Concomitant]
     Active Substance: POTASSIUM
  8. IBUPROFEN [Concomitant]
     Active Substance: IBUPROFEN
  9. VITAMINS [Concomitant]
     Active Substance: VITAMINS
  10. ANASTROZOLE [Concomitant]
     Active Substance: ANASTROZOLE
  11. ASPIRIN [Concomitant]
     Active Substance: ASPIRIN
  12. FISH OIL [Concomitant]
     Active Substance: FISH OIL
  13. VITAMIN D [Concomitant]
     Active Substance: VITAMIN D NOS
  14. DOCUSATE [Concomitant]
     Active Substance: DOCUSATE
  15. MOTRIN [Concomitant]
     Active Substance: IBUPROFEN
  16. ZOFRAN [Concomitant]
     Active Substance: ONDANSETRON HYDROCHLORIDE
  17. UREA EXTERNAL CREAM [Concomitant]

REACTIONS (1)
  - Disease progression [None]
